FAERS Safety Report 23642833 (Version 2)
Quarter: 2024Q2

REPORT INFORMATION
  Report Type: Spontaneous
  Country: US (occurrence: US)
  Receive Date: 20240318
  Receipt Date: 20240620
  Transmission Date: 20240716
  Serious: No
  Sender: FDA-Public Use
  Company Number: US-E2BLSMVVAL-SPO/USA/24/0003845

PATIENT
  Sex: Male

DRUGS (1)
  1. LIOTHYRONINE SODIUM [Suspect]
     Active Substance: LIOTHYRONINE SODIUM
     Indication: Hypothyroidism
     Dosage: TWICE A DAY.
     Route: 065
     Dates: end: 20240229

REACTIONS (3)
  - Fatigue [Recovered/Resolved]
  - Lethargy [Recovered/Resolved]
  - Therapy cessation [Recovered/Resolved]
